FAERS Safety Report 4910543-X (Version None)
Quarter: 2006Q1

REPORT INFORMATION
  Report Type: 
  Country: None (occurrence: None)
  Receive Date: 20060214
  Receipt Date: 20060130
  Transmission Date: 20060701
  Serious: Yes (Other)
  Sender: FDA-Public Use
  Company Number: JP-ROCHE-435345

PATIENT
  Age: 52 Year
  Sex: Female

DRUGS (2)
  1. TAMIFLU [Suspect]
     Indication: INFLUENZA
     Route: 048
     Dates: start: 20060119, end: 20060121
  2. HUSTAZOL [Concomitant]
     Route: 048

REACTIONS (1)
  - HYPOTHERMIA [None]
